FAERS Safety Report 11105978 (Version 2)
Quarter: 2017Q3

REPORT INFORMATION
  Report Type: Spontaneous
  Country: US (occurrence: US)
  Receive Date: 20150512
  Receipt Date: 20170728
  Transmission Date: 20171127
  Serious: Yes (Hospitalization)
  Sender: FDA-Public Use
  Company Number: US-SUN PHARMACEUTICAL INDUSTRIES LTD-2015US-96151

PATIENT
  Age: 48 Year
  Sex: Female

DRUGS (6)
  1. LITHIUM. [Interacting]
     Active Substance: LITHIUM
     Dosage: 900 MG, BID
     Route: 048
  2. LITHIUM. [Suspect]
     Active Substance: LITHIUM
     Indication: MANIA
     Dosage: 600 MG, BID
     Route: 048
  3. LITHIUM. [Interacting]
     Active Substance: LITHIUM
     Indication: MANIA
     Dosage: 400 MG, BID
     Route: 048
  4. LACTULOSE. [Interacting]
     Active Substance: LACTULOSE
     Indication: CONSTIPATION
     Dosage: 5 DOSES OF 30 ML
     Route: 065
  5. QUETIAPINE. [Concomitant]
     Active Substance: QUETIAPINE
     Indication: MANIA
     Dosage: 400 MG, BID
     Route: 065
  6. BENAZEPRIL [Concomitant]
     Active Substance: BENAZEPRIL HYDROCHLORIDE
     Indication: HYPERTENSION
     Dosage: 20 MG, DAILY
     Route: 065

REACTIONS (4)
  - Drug interaction [Unknown]
  - Tremor [Unknown]
  - Toxicity to various agents [Recovered/Resolved]
  - Somnolence [Unknown]
